FAERS Safety Report 8204248-X (Version None)
Quarter: 2012Q1

REPORT INFORMATION
  Report Type: 
  Country: None (occurrence: None)
  Receive Date: 20120313
  Receipt Date: 20120302
  Transmission Date: 20120608
  Serious: Yes (Hospitalization, Other)
  Sender: FDA-Public Use
  Company Number: JP-BRISTOL-MYERS SQUIBB COMPANY-16412066

PATIENT
  Age: 65 Year
  Sex: Male

DRUGS (18)
  1. SITAGLIPTIN PHOSPHATE [Concomitant]
     Dosage: TRADE: GLACTIV
  2. MAGNESIUM OXIDE [Concomitant]
  3. EPADEL [Concomitant]
  4. JANUVIA [Concomitant]
  5. GLYCYRRHIZA [Concomitant]
  6. NEULEPTIL [Concomitant]
  7. GLYBURIDE [Concomitant]
  8. GLYBURIDE [Concomitant]
  9. NATEGLINIDE [Concomitant]
  10. PARKIN [Concomitant]
  11. GLUCOBAY [Concomitant]
  12. ENALAPRIL MALEATE [Concomitant]
  13. FORIT [Concomitant]
  14. LAXOBERON [Concomitant]
  15. CARVEDILOL [Concomitant]
  16. METFORMIN HCL [Suspect]
     Indication: TYPE 2 DIABETES MELLITUS
     Route: 048
     Dates: start: 20120113, end: 20120202
  17. HALOPERIDOL [Concomitant]
  18. LASIX [Concomitant]

REACTIONS (2)
  - CARDIAC FAILURE [None]
  - OEDEMA [None]
